FAERS Safety Report 18517511 (Version 5)
Quarter: 2022Q1

REPORT INFORMATION
  Report Type: Report from Study
  Country: US (occurrence: US)
  Receive Date: 20201118
  Receipt Date: 20220217
  Transmission Date: 20220424
  Serious: Yes (Other)
  Sender: FDA-Public Use
  Company Number: US-TAKEDA-US202027191

PATIENT
  Sex: Female

DRUGS (2)
  1. HUMAN IMMUNOGLOBULIN G\HYALURONIDASE RECOMBINANT HUMAN [Suspect]
     Active Substance: HUMAN IMMUNOGLOBULIN G\HYALURONIDASE RECOMBINANT HUMAN
     Indication: Primary immunodeficiency syndrome
     Dosage: UNK
     Route: 065
  2. HUMAN IMMUNOGLOBULIN G\HYALURONIDASE RECOMBINANT HUMAN [Suspect]
     Active Substance: HUMAN IMMUNOGLOBULIN G\HYALURONIDASE RECOMBINANT HUMAN
     Indication: Immunodeficiency common variable

REACTIONS (14)
  - Autoimmune disorder [Unknown]
  - Sepsis [Unknown]
  - Behcet^s syndrome [Recovering/Resolving]
  - Lymphoedema [Unknown]
  - Ear infection [Unknown]
  - Adverse drug reaction [Unknown]
  - Gastrointestinal disorder [Unknown]
  - Rash [Unknown]
  - Blood pressure fluctuation [Unknown]
  - Bone marrow disorder [Unknown]
  - Gastrointestinal viral infection [Unknown]
  - Pleurisy [Recovered/Resolved]
  - Product dose omission issue [Unknown]
  - Insurance issue [Unknown]
